FAERS Safety Report 10820458 (Version 1)
Quarter: 2015Q1

REPORT INFORMATION
  Report Type: Spontaneous
  Country: DE (occurrence: None)
  Receive Date: 20150213
  Receipt Date: 20150213
  Transmission Date: 20150721
  Serious: Yes (Hospitalization)
  Sender: FDA-Public Use
  Company Number: INT_00690_2015

PATIENT
  Age: 44 Year
  Sex: Male

DRUGS (3)
  1. BLEOMYCIN [Suspect]
     Active Substance: BLEOMYCIN SULFATE
     Indication: TESTICULAR GERM CELL CANCER METASTATIC
     Dosage: DF
  2. ETOPOSIDE (ETOPOSIDE) [Suspect]
     Active Substance: ETOPOSIDE
     Indication: TESTICULAR GERM CELL CANCER METASTATIC
     Dosage: DF
  3. CISPLATIN (CISPLATIN) (HQ SPECIALTY) [Suspect]
     Active Substance: CISPLATIN
     Indication: TESTICULAR GERM CELL CANCER METASTATIC
     Dosage: DF

REACTIONS (1)
  - Cerebral infarction [None]
